FAERS Safety Report 26176230 (Version 1)
Quarter: 2025Q4

REPORT INFORMATION
  Report Type: Spontaneous
  Country: US (occurrence: None)
  Receive Date: 20251218
  Receipt Date: 20251218
  Transmission Date: 20260118
  Serious: Yes (Hospitalization)
  Sender: FDA-CTU
  Company Number: None

PATIENT
  Age: 73 Year
  Sex: Male

DRUGS (17)
  1. NUPLAZID [Suspect]
     Active Substance: PIMAVANSERIN TARTRATE
     Indication: Parkinson^s disease
     Dosage: FREQUENCY : DAILY;
     Route: 048
     Dates: start: 20250425
  2. NUPLAZID [Suspect]
     Active Substance: PIMAVANSERIN TARTRATE
     Indication: Hallucination, visual
  3. LEVOTHYROXINE [Concomitant]
     Active Substance: LEVOTHYROXINE
  4. METOPROLOL [Concomitant]
     Active Substance: METOPROLOL
  5. SIMVASTATIN [Concomitant]
     Active Substance: SIMVASTATIN
  6. LASIX [Concomitant]
     Active Substance: FUROSEMIDE
  7. Sinmet [Concomitant]
  8. ENTACAPONE [Concomitant]
     Active Substance: ENTACAPONE
  9. DONEPEZIL [Concomitant]
     Active Substance: DONEPEZIL
  10. FOSAMAX [Concomitant]
     Active Substance: ALENDRONATE SODIUM
  11. ASPIRIN [Concomitant]
     Active Substance: ASPIRIN
  12. FISH OIL [Concomitant]
     Active Substance: FISH OIL
  13. COENZYME Q10 [Concomitant]
     Active Substance: DIETARY SUPPLEMENT\UBIDECARENONE
  14. VITAMIN D3 [Concomitant]
     Active Substance: CHOLECALCIFEROL
  15. MAGNESIUM [Concomitant]
     Active Substance: MAGNESIUM
  16. VITAMINS [Concomitant]
     Active Substance: VITAMINS
  17. KEFLEX [Concomitant]
     Active Substance: CEPHALEXIN

REACTIONS (4)
  - Gait disturbance [None]
  - Nephrolithiasis [None]
  - Diverticulitis [None]
  - Urinary tract infection [None]

NARRATIVE: CASE EVENT DATE: 20251207
